FAERS Safety Report 7768219-X (Version None)
Quarter: 2011Q3

REPORT INFORMATION
  Report Type: 
  Country: None (occurrence: None)
  Receive Date: 20110922
  Receipt Date: 20110922
  Transmission Date: 20111222
  Serious: Yes (Life-Threatening, Hospitalization)
  Sender: FDA-Public Use
  Company Number: None

PATIENT
  Age: 53 Year
  Sex: Female
  Weight: 58.967 kg

DRUGS (1)
  1. AMOXICILLIN [Suspect]
     Dosage: 1 CAP
     Route: 048
     Dates: start: 20110916, end: 20110916

REACTIONS (4)
  - DIZZINESS [None]
  - DRUG HYPERSENSITIVITY [None]
  - BLOOD PRESSURE DECREASED [None]
  - HYPERHIDROSIS [None]
